FAERS Safety Report 9088611 (Version 1)
Quarter: 2013Q1

REPORT INFORMATION
  Report Type: Spontaneous
  Country: DE (occurrence: DE)
  Receive Date: 20130218
  Receipt Date: 20130218
  Transmission Date: 20140127
  Serious: Yes (Other)
  Sender: FDA-Public Use
  Company Number: DE-AMGEN-DEUSP2013009940

PATIENT
  Age: 57 Year
  Sex: Male

DRUGS (2)
  1. ENBREL [Suspect]
     Indication: PSORIATIC ARTHROPATHY
     Dosage: 50 MG, WEEKLY
     Dates: start: 20110615, end: 20120901
  2. ENBREL [Suspect]
     Dosage: 50 MG, WEEKLY
     Dates: end: 201210

REACTIONS (2)
  - Arterial disorder [Not Recovered/Not Resolved]
  - Lymph node abscess [Not Recovered/Not Resolved]
